APPROVED DRUG PRODUCT: PROMETHAZINE HYDROCHLORIDE
Active Ingredient: PROMETHAZINE HYDROCHLORIDE
Strength: 50MG
Dosage Form/Route: TABLET;ORAL
Application: A040863 | Product #003
Applicant: SUN PHARMACEUTICAL INDUSTRIES INC
Approved: Dec 30, 2008 | RLD: No | RS: No | Type: DISCN